FAERS Safety Report 7740389-9 (Version None)
Quarter: 2011Q3

REPORT INFORMATION
  Report Type: 
  Country: None (occurrence: None)
  Receive Date: 20110909
  Receipt Date: 20110829
  Transmission Date: 20111222
  Serious: Yes (Other)
  Sender: FDA-Public Use
  Company Number: US-BAYER-2011-009633

PATIENT
  Age: 23 Year
  Sex: Female
  Weight: 78.458 kg

DRUGS (1)
  1. YASMIN [Suspect]
     Indication: CONTRACEPTION
     Dosage: UNK
     Dates: start: 20061101

REACTIONS (7)
  - ABDOMINAL DISCOMFORT [None]
  - PAIN [None]
  - CHOLECYSTITIS ACUTE [None]
  - EMOTIONAL DISTRESS [None]
  - GALLBLADDER DISORDER [None]
  - FLANK PAIN [None]
  - CHOLECYSTITIS CHRONIC [None]
